FAERS Safety Report 4861174-1 (Version None)
Quarter: 2005Q4

REPORT INFORMATION
  Report Type: 
  Country: None (occurrence: None)
  Receive Date: 20051216
  Receipt Date: 20051018
  Transmission Date: 20060501
  Serious: Yes (Death, Life-Threatening)
  Sender: FDA-Public Use
  Company Number: 2005-133727-NL

PATIENT
  Age: 76 Year
  Sex: Female

DRUGS (9)
  1. DANAPAROID SODIUM [Suspect]
     Indication: DISSEMINATED INTRAVASCULAR COAGULATION
     Dosage: 1250 ANTI_XA INTRAVENOUS (NOS)
     Route: 042
     Dates: start: 20051011, end: 20051013
  2. HEPARIN SODIUM [Concomitant]
  3. ANTITHROMBIN III [Concomitant]
  4. INTRAVENOUS DRIP [Concomitant]
  5. HYDROCORTISONE SODIUM SUCCINATE [Concomitant]
  6. INTRAVENOUS DRIP [Concomitant]
  7. OMEPRAZOLE [Concomitant]
  8. MEROPENEM [Concomitant]
  9. POLYTHYLENE GLYCOL [Concomitant]

REACTIONS (7)
  - ARRHYTHMIA [None]
  - CARDIAC ARREST [None]
  - CEREBRAL INFARCTION [None]
  - HAEMATEMESIS [None]
  - HAEMODIALYSIS [None]
  - SEPTIC SHOCK [None]
  - ULCER HAEMORRHAGE [None]
